FAERS Safety Report 5677906-9 (Version None)
Quarter: 2008Q1

REPORT INFORMATION
  Report Type: 
  Country: None (occurrence: None)
  Receive Date: 20080319
  Receipt Date: 20080305
  Transmission Date: 20080703
  Serious: Yes (Other)
  Sender: FDA-Public Use
  Company Number: 430002M08USA

PATIENT
  Age: 60 Year
  Sex: Male
  Weight: 93.441 kg

DRUGS (9)
  1. NOVANTRONE [Suspect]
     Indication: MULTIPLE SCLEROSIS
     Dosage: 12 MG/M2, 3 IN 1 MONTHS; 12 MG/M2, 3 IN 1 MONTHS; 6 MG/M2, 3 IN 1 MONTHS; 5 MG/M2, ONCE
     Dates: start: 20020401, end: 20021101
  2. NOVANTRONE [Suspect]
     Indication: MULTIPLE SCLEROSIS
     Dosage: 12 MG/M2, 3 IN 1 MONTHS; 12 MG/M2, 3 IN 1 MONTHS; 6 MG/M2, 3 IN 1 MONTHS; 5 MG/M2, ONCE
     Dates: start: 20040101, end: 20040701
  3. NOVANTRONE [Suspect]
     Indication: MULTIPLE SCLEROSIS
     Dosage: 12 MG/M2, 3 IN 1 MONTHS; 12 MG/M2, 3 IN 1 MONTHS; 6 MG/M2, 3 IN 1 MONTHS; 5 MG/M2, ONCE
     Dates: start: 20041001, end: 20071027
  4. DETROL [Concomitant]
  5. PROVIGIL [Concomitant]
  6. DOXEPIN (DOXEPIN /0013801/) [Concomitant]
  7. CELEXA [Concomitant]
  8. AVONEX [Concomitant]
  9. NEXIUM [Concomitant]

REACTIONS (1)
  - MULTIPLE MYELOMA [None]
